FAERS Safety Report 9511595 (Version 1)
Quarter: 2013Q3

REPORT INFORMATION
  Report Type: Report from Study
  Country: US (occurrence: US)
  Receive Date: 20130910
  Receipt Date: 20130910
  Transmission Date: 20140515
  Serious: Yes (Hospitalization)
  Sender: FDA-Public Use
  Company Number: PHEH2013US018807

PATIENT
  Age: 16 Year
  Sex: Female

DRUGS (2)
  1. GLEEVEC [Suspect]
     Indication: LEUKAEMIA
     Dosage: 100 MG, DAILY
     Route: 048
     Dates: start: 20130730
  2. GLEEVEC [Suspect]
     Dosage: UNK UKN, UNK

REACTIONS (1)
  - Arterial occlusive disease [Unknown]
